FAERS Safety Report 9693270 (Version 1)
Quarter: 2013Q4

REPORT INFORMATION
  Report Type: Spontaneous
  Country: AU (occurrence: AU)
  Receive Date: 20131118
  Receipt Date: 20131118
  Transmission Date: 20140711
  Serious: Yes (Hospitalization, Other)
  Sender: FDA-Public Use
  Company Number: AU-PFIZER INC-2013324144

PATIENT
  Age: 5 Year
  Sex: Female

DRUGS (4)
  1. CISPLATIN [Suspect]
     Indication: MEDULLOBLASTOMA
     Dosage: 75 MG/M2, ON DAY 1
  2. CYCLOPHOSPHAMIDE [Suspect]
     Indication: MEDULLOBLASTOMA
     Dosage: 1000 MG/M2, ON DAY 2 AND 3
  3. VINCRISTINE SULFATE [Suspect]
     Indication: MEDULLOBLASTOMA
     Dosage: 1.5 MG/M2, ON DAY 1 AND 8
  4. GRANULOCYTE COLONY-STIMULATING FACTOR NOS [Concomitant]
     Dosage: ON DAY 4 OF EACH CYCLE

REACTIONS (3)
  - Venoocclusive liver disease [Recovered/Resolved]
  - Ototoxicity [Unknown]
  - Bone marrow failure [Unknown]
